FAERS Safety Report 5226382-9 (Version None)
Quarter: 2007Q1

REPORT INFORMATION
  Report Type: 
  Country: None (occurrence: None)
  Receive Date: 20061201
  Receipt Date: 20061025
  Transmission Date: 20070707
  Serious: No
  Sender: FDA-Public Use
  Company Number: US200610004680

PATIENT
  Age: 45 Year
  Sex: Female

DRUGS (18)
  1. CYMBALTA [Suspect]
     Indication: BIPOLAR DISORDER
     Dosage: 60 MG
     Dates: start: 20060801
  2. TOPAMAX /AUS/(TOPIRAMATE) [Concomitant]
  3. ATIVAN [Concomitant]
  4. ADDERALL (AMFETAMIN ASPARTATE, AMFETAMINE SULFATE, DEXAMFETAMINE SACCH [Concomitant]
  5. RELAFEN [Concomitant]
  6. DYAZIDE /CAN/ (HYDROCHLOROTHIAZIDE, TRIAMTERENE) [Concomitant]
  7. LOMOTIL [Concomitant]
  8. FAMVIR [Concomitant]
  9. PAMINE (HYOSCINE METHOBROMIDE) [Concomitant]
  10. TRILEPTAL [Concomitant]
  11. RANITIDINE [Concomitant]
  12. ESTRADIOL [Concomitant]
  13. MEDROXYPROGESTERONE [Concomitant]
  14. AMBIEN [Concomitant]
  15. EZETIMIBE (EZETIMIBE) [Concomitant]
  16. TRICOR [Concomitant]
  17. PROTONIX [Concomitant]
  18. SIMVASTATIN [Concomitant]

REACTIONS (4)
  - DEPRESSION [None]
  - HOMICIDAL IDEATION [None]
  - IRRITABILITY [None]
  - MOOD SWINGS [None]
